FAERS Safety Report 9405940 (Version 2)
Quarter: 2013Q3

REPORT INFORMATION
  Report Type: Spontaneous
  Country: FR (occurrence: FR)
  Receive Date: 20130717
  Receipt Date: 20130722
  Transmission Date: 20140515
  Serious: Yes (Hospitalization)
  Sender: FDA-Public Use
  Company Number: FR-GLAXOSMITHKLINE-B0906406A

PATIENT
  Age: 89 Year
  Sex: Male

DRUGS (8)
  1. LAMICTAL [Suspect]
     Indication: EPILEPSY
     Route: 048
     Dates: start: 20130501, end: 20130509
  2. KEPPRA [Concomitant]
     Indication: EPILEPSY
     Dosage: 250MG TWICE PER DAY
     Route: 048
     Dates: start: 20130509, end: 20130511
  3. PERINDOPRIL [Concomitant]
     Indication: PRODUCT USED FOR UNKNOWN INDICATION
     Dosage: 4MG PER DAY
     Route: 048
  4. METFORMINE [Concomitant]
     Indication: PRODUCT USED FOR UNKNOWN INDICATION
     Dosage: 500MG THREE TIMES PER DAY
     Route: 048
  5. INEXIUM [Concomitant]
     Indication: PRODUCT USED FOR UNKNOWN INDICATION
     Dosage: 20MG PER DAY
     Route: 048
  6. KARDEGIC [Concomitant]
     Indication: PRODUCT USED FOR UNKNOWN INDICATION
     Dosage: 75MG PER DAY
     Route: 048
  7. TAHOR [Concomitant]
     Indication: PRODUCT USED FOR UNKNOWN INDICATION
     Dosage: 10MG PER DAY
     Route: 048
  8. SEROPLEX [Concomitant]
     Indication: PRODUCT USED FOR UNKNOWN INDICATION
     Dosage: 20MG PER DAY
     Route: 048

REACTIONS (10)
  - Toxic skin eruption [Recovered/Resolved with Sequelae]
  - Urticaria [Recovered/Resolved]
  - Lip oedema [Recovered/Resolved with Sequelae]
  - Lymphocyte count decreased [Unknown]
  - Rash morbilliform [Recovered/Resolved]
  - Rash pustular [Recovered/Resolved]
  - Rash maculo-papular [Recovered/Resolved]
  - Disorientation [Unknown]
  - Anaemia [Unknown]
  - Lichenoid keratosis [Recovered/Resolved]
